FAERS Safety Report 5120548-4 (Version None)
Quarter: 2006Q4

REPORT INFORMATION
  Report Type: 
  Country: None (occurrence: None)
  Receive Date: 20061004
  Receipt Date: 20060921
  Transmission Date: 20070319
  Serious: Yes (Disabling)
  Sender: FDA-Public Use
  Company Number: PHBS2006JP14799

PATIENT

DRUGS (1)
  1. NEORAL [Suspect]
     Indication: INTERSTITIAL LUNG DISEASE
     Route: 065

REACTIONS (1)
  - HEARING IMPAIRED [None]
